FAERS Safety Report 24986375 (Version 2)
Quarter: 2025Q1

REPORT INFORMATION
  Report Type: Report from Study
  Country: US (occurrence: US)
  Receive Date: 20250219
  Receipt Date: 20250306
  Transmission Date: 20250409
  Serious: Yes (Other)
  Sender: ABBVIE
  Company Number: US-ABBVIE-6140288

PATIENT
  Age: 75 Year
  Sex: Female
  Weight: 59 kg

DRUGS (3)
  1. HUMIRA [Suspect]
     Active Substance: ADALIMUMAB
     Indication: Rheumatoid arthritis
     Dosage: FORM STRENGTH 40 MILLIGRAM
     Route: 058
     Dates: start: 202501
  2. HUMIRA [Suspect]
     Active Substance: ADALIMUMAB
     Dosage: FORM STRENGTH 40 MILLIGRAM
     Route: 058
     Dates: start: 202310, end: 202412
  3. AZATHIOPRINE [Concomitant]
     Active Substance: AZATHIOPRINE
     Indication: Rheumatoid arthritis

REACTIONS (1)
  - Carpal tunnel syndrome [Recovering/Resolving]

NARRATIVE: CASE EVENT DATE: 20240701
